FAERS Safety Report 13581665 (Version 5)
Quarter: 2017Q3

REPORT INFORMATION
  Report Type: Spontaneous
  Country: KR (occurrence: KR)
  Receive Date: 20170525
  Receipt Date: 20170824
  Transmission Date: 20171127
  Serious: Yes (Hospitalization)
  Sender: FDA-Public Use
  Company Number: KR-009507513-1705KOR011679

PATIENT
  Age: 84 Year
  Sex: Male
  Weight: 54.1 kg

DRUGS (27)
  1. AD MYCIN VIAL [Concomitant]
     Dosage: 30 MG, ONCE; CYCLE 2
     Route: 042
     Dates: start: 20170317, end: 20170317
  2. DEXAMETHASONE SODIUM PHOSPHATE. [Concomitant]
     Active Substance: DEXAMETHASONE SODIUM PHOSPHATE
     Dosage: 10 MG, ONCE
     Route: 042
     Dates: start: 20170317, end: 20170317
  3. NEULASTA [Concomitant]
     Active Substance: PEGFILGRASTIM
     Indication: PROPHYLAXIS
     Dosage: 6 MG, QD
     Route: 058
     Dates: start: 20170305, end: 20170319
  4. AD MYCIN VIAL [Concomitant]
     Indication: HODGKIN^S DISEASE STAGE I
     Dosage: 30 MG, ONCE; CYCLE 1
     Dates: start: 20170303, end: 20170303
  5. DACARBAZINE. [Concomitant]
     Active Substance: DACARBAZINE
     Indication: HODGKIN^S DISEASE STAGE I
     Dosage: 440 MG, ONCE; CYCLE 1
     Route: 042
     Dates: start: 20170303, end: 20170303
  6. DEXAMETHASONE. [Concomitant]
     Active Substance: DEXAMETHASONE
     Indication: PROPHYLAXIS
     Dosage: 8 MG, QD
     Route: 048
     Dates: start: 20170304, end: 20170306
  7. VELBASTINE [Concomitant]
     Indication: HODGKIN^S DISEASE STAGE I
     Dosage: 7 MG, ONCE; CYCLE 1
     Route: 042
     Dates: start: 20170303, end: 20170303
  8. SYNTHYROXINE [Concomitant]
     Active Substance: LEVOTHYROXINE SODIUM
     Indication: AUTOIMMUNE THYROIDITIS
     Dosage: 0.5 TABLET, QD
     Route: 048
  9. EMEND (FOSAPREPITANT DIMEGLUMINE) [Suspect]
     Active Substance: FOSAPREPITANT DIMEGLUMINE
     Indication: PROPHYLAXIS OF NAUSEA AND VOMITING
     Dosage: 150 MG, ONCE
     Route: 042
     Dates: start: 20170303, end: 20170303
  10. EMEND (FOSAPREPITANT DIMEGLUMINE) [Suspect]
     Active Substance: FOSAPREPITANT DIMEGLUMINE
     Dosage: 150 MG, ONCE
     Route: 042
     Dates: start: 20170317, end: 20170317
  11. ZANIDIP [Concomitant]
     Active Substance: LERCANIDIPINE HYDROCHLORIDE
     Indication: HYPERTENSION
     Dosage: 10 MG (1 TABLET), QD
     Route: 048
  12. VELBASTINE [Concomitant]
     Dosage: 7.2 MG, ONCE; CYCLE 2
     Route: 042
     Dates: start: 20170317, end: 20170317
  13. BLEOCIN [Concomitant]
     Active Substance: BLEOMYCIN SULFATE
     Dosage: 12 MG, ONCE; CYCLE 2; STRENGTH REPORTED AS 15 MG/A
     Route: 042
     Dates: start: 20170317, end: 20170317
  14. DACARBAZINE. [Concomitant]
     Active Substance: DACARBAZINE
     Dosage: 450 MG, ONCE; CYCLE 2
     Route: 042
     Dates: start: 20170303, end: 20170303
  15. CARDIOXANE [Concomitant]
     Active Substance: DEXRAZOXANE HYDROCHLORIDE
     Indication: HODGKIN^S DISEASE STAGE I
     Dosage: 300 MG, ONCE, CYCLE 1
     Route: 042
     Dates: start: 20170303, end: 20170303
  16. DEXAMETHASONE SODIUM PHOSPHATE. [Concomitant]
     Active Substance: DEXAMETHASONE SODIUM PHOSPHATE
     Indication: PREMEDICATION
     Dosage: 10 MG, ONCE
     Route: 042
     Dates: start: 20170303, end: 20170303
  17. FINASTAR [Concomitant]
     Indication: BENIGN PROSTATIC HYPERPLASIA
     Dosage: 5 MG (1 TABLET), QD
     Route: 048
  18. EMEND [Concomitant]
     Active Substance: APREPITANT
     Indication: PROPHYLAXIS OF NAUSEA AND VOMITING
     Dosage: 80 MG (1 CAPSULE), QD
     Route: 048
     Dates: start: 20170217, end: 20170319
  19. SCD MAGNESIUM OXIDE [Concomitant]
     Indication: PROPHYLAXIS
     Dosage: 250 MG (1 TABLET), TID
     Route: 048
     Dates: start: 201702, end: 20170304
  20. HARNAL [Concomitant]
     Active Substance: TAMSULOSIN HYDROCHLORIDE
     Indication: BENIGN PROSTATIC HYPERPLASIA
     Dosage: 0.4 MG (2 TABLETS), QD
     Route: 048
  21. BLEOCIN [Concomitant]
     Active Substance: BLEOMYCIN SULFATE
     Indication: HODGKIN^S DISEASE STAGE I
     Dosage: 12 MG, ONCE; CYCLE 1; STRENGTH REPORTED AS 15 MG/A
     Route: 042
     Dates: start: 20170303, end: 20170303
  22. CEFTRIAXONE SODIUM. [Concomitant]
     Active Substance: CEFTRIAXONE SODIUM
     Indication: PROPHYLAXIS
     Dosage: 2 G, QD
     Route: 042
     Dates: start: 20170223, end: 20170303
  23. METRONIDAZOLE. [Concomitant]
     Active Substance: METRONIDAZOLE
     Indication: PROPHYLAXIS
     Dosage: 500 MG, TID
     Route: 042
     Dates: start: 20170223, end: 20170302
  24. LANSTON [Concomitant]
     Active Substance: LANSOPRAZOLE
     Indication: PROPHYLAXIS
     Dosage: 30 MG (1 TABLET), QD
     Route: 048
     Dates: start: 201702, end: 20170330
  25. CARDIOXANE [Concomitant]
     Active Substance: DEXRAZOXANE HYDROCHLORIDE
     Dosage: 300 MG, ONCE, CYCLE 2
     Route: 042
     Dates: start: 20170317, end: 20170317
  26. DEXAMETHASONE. [Concomitant]
     Active Substance: DEXAMETHASONE
     Dosage: 8 MG, QD
     Route: 048
     Dates: start: 20170318, end: 20170320
  27. SANCUSO [Concomitant]
     Active Substance: GRANISETRON
     Indication: PREMEDICATION
     Dosage: STRENGTH: 80.2 X 66.6 MM^2; 1 PK, QD
     Route: 059
     Dates: start: 20170301, end: 20170303

REACTIONS (3)
  - Dyspnoea [Recovered/Resolved]
  - Cough [Recovered/Resolved]
  - Pyrexia [Recovered/Resolved]

NARRATIVE: CASE EVENT DATE: 20170316
